FAERS Safety Report 7963095-4 (Version None)
Quarter: 2011Q4

REPORT INFORMATION
  Report Type: 
  Country: None (occurrence: None)
  Receive Date: 20111207
  Receipt Date: 20111123
  Transmission Date: 20120403
  Serious: Yes (Hospitalization, Other)
  Sender: FDA-Public Use
  Company Number: DE-ROCHE-744324

PATIENT
  Sex: Male
  Weight: 82.1 kg

DRUGS (12)
  1. KARVEA [Concomitant]
     Indication: HYPERTENSION
     Dosage: DOSE NOT PROVIDED
     Route: 048
  2. BERLINSULIN H [Concomitant]
     Indication: DIABETES MELLITUS
     Route: 058
  3. LIPROLOG [Concomitant]
     Indication: DIABETES MELLITUS
     Dosage: UNIT: E/ML
     Route: 058
  4. SIMVASTATIN [Concomitant]
     Indication: HYPERCHOLESTEROLAEMIA
     Dosage: DOSE NOT PROVIDED,SCHEDULED AS 1 X 1/2
     Route: 048
  5. TRIMINEURIN [Concomitant]
     Indication: DEPRESSION
     Dosage: SCHEDULING 1 X 1/2, 1 X 1/4.
     Route: 048
  6. XELODA [Suspect]
     Dosage: DOSE REDUCED IN RESPONSE TO GASTROENTERITIS NOVOVIRUS
     Route: 048
  7. DIGITOXIN TAB [Concomitant]
     Indication: HYPERTENSION
     Route: 048
  8. MEMANTINE HYDROCHLORIDE [Concomitant]
     Indication: DEMENTIA
     Dosage: DOSE NOT PROVIDED
     Route: 048
  9. OXALIPLATIN [Suspect]
     Indication: RECTAL CANCER
     Dosage: GIVEN ON DAYS 1, 8, 15, 22 + 29. LAST DOSE PRIOR TO 1ST SAE 08/NOV/2010. ACTUAL DOSE: 827MG
     Route: 042
  10. OXALIPLATIN [Suspect]
     Dosage: POST-OPERATIVE PHASE. DOSE GIVEN ON DAY 1 OF EACH CYCLE (3 WEEKS) FOR 6 CYCLES
     Route: 042
  11. XELODA [Suspect]
     Indication: RECTAL CANCER
     Dosage: GIVEN ON DAYS 1-33 EXCL. WEEKENDS. LAST DOSE PRIOR TOSAE: 09/NOV/2010
     Route: 048
  12. XELODA [Suspect]
     Dosage: POST-OPERATIVE PHASE. DOSE GIVEN TWICE DAILY ON DAYS 1-15 OF EACH CYCLE (3 WEEKS) FOR 6 CYCLES
     Route: 048

REACTIONS (6)
  - POST PROCEDURAL HAEMORRHAGE [None]
  - GASTROENTERITIS NOROVIRUS [None]
  - LYMPHOCYTE PERCENTAGE DECREASED [None]
  - HAEMATOCRIT DECREASED [None]
  - RED BLOOD CELL COUNT DECREASED [None]
  - HAEMOGLOBIN DECREASED [None]
